FAERS Safety Report 12713895 (Version 1)
Quarter: 2016Q3

REPORT INFORMATION
  Report Type: Spontaneous
  Country: GB (occurrence: GB)
  Receive Date: 20160905
  Receipt Date: 20160905
  Transmission Date: 20161109
  Serious: Yes (Hospitalization)
  Sender: FDA-Public Use
  Company Number: GB-ROCHE-1825155

PATIENT
  Age: 43 Year
  Sex: Female
  Weight: 65 kg

DRUGS (4)
  1. RANITIDINE HYDROCHLORIDE. [Suspect]
     Active Substance: RANITIDINE HYDROCHLORIDE
     Indication: PREMEDICATION
     Route: 042
     Dates: start: 20160808, end: 20160808
  2. HERCEPTIN [Suspect]
     Active Substance: TRASTUZUMAB
     Indication: BREAST CANCER
     Dosage: MOST RECENT DOSE ON 08/AUG/2016.
     Route: 058
     Dates: start: 20160808
  3. EPIRUBICIN [Concomitant]
     Active Substance: EPIRUBICIN
     Indication: CHEMOTHERAPY
  4. CYCLOPHOSPHAMIDE. [Concomitant]
     Active Substance: CYCLOPHOSPHAMIDE
     Indication: CHEMOTHERAPY

REACTIONS (5)
  - Blood pressure decreased [Recovered/Resolved]
  - Depressed level of consciousness [Recovered/Resolved]
  - Vomiting [Recovered/Resolved]
  - Malaise [Recovered/Resolved]
  - Tremor [Recovered/Resolved]

NARRATIVE: CASE EVENT DATE: 20160808
